FAERS Safety Report 6579544-2 (Version None)
Quarter: 2010Q1

REPORT INFORMATION
  Report Type: 
  Country: None (occurrence: None)
  Receive Date: 20100212
  Receipt Date: 20100128
  Transmission Date: 20100710
  Serious: No
  Sender: FDA-Public Use
  Company Number: B0621404A

PATIENT
  Age: 1 Year
  Sex: Male

DRUGS (1)
  1. RELENZA [Suspect]
     Indication: ANTIVIRAL PROPHYLAXIS
     Dates: start: 20091210

REACTIONS (1)
  - DRUG EXPOSURE VIA BREAST MILK [None]
